FAERS Safety Report 6766955-5 (Version None)
Quarter: 2010Q2

REPORT INFORMATION
  Report Type: 
  Country: None (occurrence: None)
  Receive Date: 20100611
  Receipt Date: 20100608
  Transmission Date: 20101027
  Serious: Yes (Death)
  Sender: FDA-Public Use
  Company Number: US-GILEAD-2010-0029705

PATIENT
  Sex: Female

DRUGS (17)
  1. LETAIRIS [Suspect]
     Indication: PULMONARY ARTERIAL HYPERTENSION
     Route: 048
     Dates: start: 20090902
  2. REVATIO [Concomitant]
  3. WARFARIN SODIUM [Concomitant]
  4. FUROSEMIDE [Concomitant]
  5. TORSEMIDE [Concomitant]
  6. METOLAZONE [Concomitant]
  7. ATROVENT [Concomitant]
  8. FLONASE [Concomitant]
  9. ADVAIR DISKUS 100/50 [Concomitant]
  10. VENTOLIN HFA [Concomitant]
  11. FLUDROCORTISONE ACETATE [Concomitant]
  12. PREDNISONE [Concomitant]
  13. OMEPRAZOLE [Concomitant]
  14. DARVOCET A500 [Concomitant]
  15. MAGNESIUM [Concomitant]
  16. CALTRATE [Concomitant]
  17. KLOR-CON [Concomitant]

REACTIONS (1)
  - DEATH [None]
